FAERS Safety Report 8022298-3 (Version None)
Quarter: 2012Q1

REPORT INFORMATION
  Report Type: 
  Country: None (occurrence: None)
  Receive Date: 20120104
  Receipt Date: 20111228
  Transmission Date: 20120608
  Serious: Yes (Other)
  Sender: FDA-Public Use
  Company Number: PHEH2011US012848

PATIENT
  Sex: Female

DRUGS (7)
  1. ALTACE [Suspect]
  2. TEKTURNA [Suspect]
     Dosage: 150 MG, ONE PER DAY
  3. NORVASC [Suspect]
  4. CARDURA [Suspect]
     Dosage: 8 MG
  5. SPIRONOLACTONE [Suspect]
     Dosage: ONE PER DAY
  6. DIOVAN [Suspect]
  7. HYDROCHLOROTHIAZIDE [Suspect]

REACTIONS (7)
  - COUGH [None]
  - PALPITATIONS [None]
  - ANGINA PECTORIS [None]
  - TINNITUS [None]
  - JOINT SWELLING [None]
  - BLOOD PRESSURE INADEQUATELY CONTROLLED [None]
  - GAIT DISTURBANCE [None]
